FAERS Safety Report 8411686-9 (Version None)
Quarter: 2012Q2

REPORT INFORMATION
  Report Type: 
  Country: None (occurrence: None)
  Receive Date: 20120605
  Receipt Date: 20120530
  Transmission Date: 20120825
  Serious: Yes (Death)
  Sender: FDA-Public Use
  Company Number: DE-PFIZER INC-2008055082

PATIENT
  Age: 41 Year
  Sex: Male
  Weight: 124 kg

DRUGS (36)
  1. PHENYTOIN [Concomitant]
     Indication: CONVULSION
  2. SOMATROPIN RDNA [Suspect]
     Indication: HYPOPITUITARISM
     Dosage: 0.3 MG, DAILY
     Route: 058
     Dates: start: 20031118
  3. CALCIUM [Concomitant]
     Dosage: 500 MG, DAILY
     Dates: start: 20000701
  4. MALIASIN [Concomitant]
     Dosage: 25 MG, 2X/DAY
     Dates: start: 20020701
  5. TESTOSTERONE [Concomitant]
     Indication: HYPOGONADISM MALE
     Dosage: 50 MG, DAILY
     Dates: start: 20030701
  6. GLUCOBAY [Concomitant]
     Indication: DIABETES MELLITUS
     Dosage: 50 MG, DAILY
     Dates: start: 20040914
  7. METFORMIN HCL [Concomitant]
     Dosage: UNK
     Dates: start: 20080201
  8. MAGNESIUM VERLA TABLET [Concomitant]
     Dosage: UNK
     Dates: start: 20050204
  9. FUROSEMIDE [Concomitant]
     Indication: OEDEMA
     Dosage: 30 MG, 3X/DAY
     Dates: start: 20000701
  10. TESTOSTERONE [Concomitant]
     Indication: BLOOD FOLLICLE STIMULATING HORMONE DECREASED
  11. FUROSEMIDE [Concomitant]
     Dosage: UNK
     Dates: start: 20061101
  12. GLUCOBAY [Concomitant]
     Dosage: 50 MG, DAILY
     Dates: start: 20070224
  13. PHENYTOIN [Concomitant]
  14. METFORMIN HCL [Concomitant]
     Indication: DIABETES MELLITUS
     Dosage: 850 MG, DAILY
     Dates: start: 20061101
  15. NEXIUM [Concomitant]
     Indication: PEPTIC ULCER
     Dosage: UNK
     Dates: start: 20070201
  16. ZENTROPIL [Concomitant]
     Dosage: AS NEEDED
     Dates: start: 19960701
  17. CALCIUM CARBONATE [Concomitant]
     Indication: OSTEOPOROSIS
     Dosage: 2.5 MG, DAILY
     Dates: start: 20050909
  18. PHENOBARBITAL [Concomitant]
  19. HYDROCORTISONE [Concomitant]
     Indication: BLOOD CORTICOTROPHIN ABNORMAL
     Dosage: 30 MG, DAILY
     Dates: start: 19960701, end: 20070223
  20. HYDROCORTISONE [Concomitant]
     Dosage: UNK
     Dates: start: 20070223
  21. GLUCOBAY [Concomitant]
     Dosage: 100 MG, DAILY
     Dates: start: 20050204
  22. BACLOFEN [Concomitant]
     Indication: MUSCLE RELAXANT THERAPY
     Dosage: 10 MG, DAILY
     Dates: start: 20050909
  23. HYDROCORTISONE [Concomitant]
     Dosage: 35 MG, DAILY
     Dates: start: 20070224
  24. VENOSTASIN [Concomitant]
     Indication: PHLEBITIS
     Dosage: 1 G, DAILY
     Dates: start: 20000701
  25. VITAMIN D [Concomitant]
     Indication: VITAMIN D DEFICIENCY
     Dosage: 400 MG, AS NEEDED
     Dates: start: 20000701
  26. MAGNESIUM [Concomitant]
     Dosage: 40 MG, DAILY
     Dates: start: 20050204
  27. LAMICTAL [Concomitant]
     Indication: CONVULSION
     Dosage: 200 MG, 2X/DAY
     Dates: start: 20070412
  28. INSULIN [Concomitant]
     Indication: DIABETES MELLITUS
     Dosage: UNK
     Dates: start: 20080201
  29. LEVOTHYROXINE SODIUM [Concomitant]
     Indication: HYPOTHYROIDISM
     Dosage: 250 UG, DAILY
     Dates: start: 19960701
  30. TESTOSTERONE [Concomitant]
     Indication: LUTEINISING HORMONE DEFICIENCY
     Dosage: 50 MG, DAILY
     Dates: start: 20050204
  31. GLUCOBAY [Concomitant]
     Dosage: UNK
     Dates: start: 20070223
  32. PHENYTOIN [Concomitant]
     Indication: EPILEPSY
     Dates: start: 20050909
  33. NEXIUM [Concomitant]
     Indication: PEPTIC ULCER
     Dosage: 40 MG, DAILY
     Dates: start: 20070201
  34. POTASSIUM CHLORIDE [Concomitant]
     Indication: HYPOKALAEMIA
     Dosage: 600 MG, 2X/DAY
     Dates: start: 20070412
  35. PHENOBARBITAL [Concomitant]
     Indication: EPILEPSY
     Dosage: UNK
     Dates: start: 20060310
  36. PHENOBARBITAL [Concomitant]
     Indication: CONVULSION

REACTIONS (1)
  - DEATH [None]
